FAERS Safety Report 25225853 (Version 3)
Quarter: 2025Q2

REPORT INFORMATION
  Report Type: Spontaneous
  Country: JP (occurrence: JP)
  Receive Date: 20250422
  Receipt Date: 20250528
  Transmission Date: 20250717
  Serious: Yes (Death)
  Sender: PFIZER
  Company Number: JP-PFIZER INC-PV202500046809

PATIENT
  Age: 8 Decade
  Sex: Male

DRUGS (3)
  1. AMPICILLIN SODIUM\SULBACTAM SODIUM [Suspect]
     Active Substance: AMPICILLIN SODIUM\SULBACTAM SODIUM
     Indication: Pneumonia
     Dosage: 6 G, DAILY
  2. AMPICILLIN SODIUM\SULBACTAM SODIUM [Suspect]
     Active Substance: AMPICILLIN SODIUM\SULBACTAM SODIUM
     Dosage: 9 G, DAILY (FROM THIRD DAY OF ADMISSION)
  3. OXYGEN [Concomitant]
     Active Substance: OXYGEN
     Indication: Respiratory failure

REACTIONS (1)
  - Drug ineffective [Fatal]
